FAERS Safety Report 7979276-X (Version None)
Quarter: 2011Q4

REPORT INFORMATION
  Report Type: 
  Country: None (occurrence: None)
  Receive Date: 20111214
  Receipt Date: 20111214
  Transmission Date: 20120403
  Serious: Yes (Other)
  Sender: FDA-Public Use
  Company Number: None

PATIENT
  Age: 42 Year
  Sex: Female
  Weight: 77.11 kg

DRUGS (2)
  1. DIPHENOXYLATE HCL + ATROPINE SULFATE [Concomitant]
  2. LOMOTIL [Suspect]
     Indication: CROHN'S DISEASE
     Dosage: 2 TABLETS
     Route: 048
     Dates: start: 20090701, end: 20111212

REACTIONS (1)
  - ABDOMINAL PAIN [None]
